FAERS Safety Report 13525772 (Version 1)
Quarter: 2017Q2

REPORT INFORMATION
  Report Type: Spontaneous
  Country: US (occurrence: US)
  Receive Date: 20170509
  Receipt Date: 20170509
  Transmission Date: 20170830
  Serious: No
  Sender: FDA-Public Use
  Company Number: US-ASTRAZENECA-2017SE45701

PATIENT
  Age: 20861 Day
  Sex: Female
  Weight: 68 kg

DRUGS (4)
  1. QUETIAPINE FUMARATE. [Suspect]
     Active Substance: QUETIAPINE FUMARATE
     Indication: BIPOLAR I DISORDER
     Route: 048
  2. QUETIAPINE FUMARATE. [Suspect]
     Active Substance: QUETIAPINE FUMARATE
     Indication: BIPOLAR I DISORDER
     Dosage: GENERIC 100 MG, TWO TIMES A DAY
     Route: 048
     Dates: start: 20170427
  3. SUBUTEX [Concomitant]
     Active Substance: BUPRENORPHINE HYDROCHLORIDE
  4. WELLBUTRIN [Concomitant]
     Active Substance: BUPROPION HYDROCHLORIDE
     Dosage: THREE TIMES DAILY

REACTIONS (11)
  - Dry mouth [Recovered/Resolved]
  - Thinking abnormal [Recovered/Resolved]
  - Speech disorder [Recovered/Resolved]
  - Dizziness [Recovered/Resolved]
  - Mental impairment [Recovered/Resolved]
  - Balance disorder [Unknown]
  - Depressed level of consciousness [Recovered/Resolved]
  - Feeling abnormal [Unknown]
  - Euphoric mood [Unknown]
  - Dysphonia [Unknown]
  - Feeling drunk [Unknown]

NARRATIVE: CASE EVENT DATE: 20170427
